FAERS Safety Report 7514254-6 (Version None)
Quarter: 2011Q2

REPORT INFORMATION
  Report Type: 
  Country: None (occurrence: None)
  Receive Date: 20110601
  Receipt Date: 20110524
  Transmission Date: 20111010
  Serious: Yes (Other)
  Sender: FDA-Public Use
  Company Number: DE-AMGEN-DEUSP2011027456

PATIENT
  Age: 51 Year
  Sex: Male

DRUGS (2)
  1. ENBREL [Suspect]
     Indication: RHEUMATOID ARTHRITIS
     Dosage: 50 MG, WEEKLY
     Dates: start: 20110201
  2. PERENTEROL                         /00243701/ [Concomitant]
     Indication: DIARRHOEA
     Dosage: UNK

REACTIONS (2)
  - KERATITIS [None]
  - RASH MACULAR [None]
